FAERS Safety Report 16346064 (Version 1)
Quarter: 2019Q2

REPORT INFORMATION
  Report Type: Spontaneous
  Country: CA (occurrence: CA)
  Receive Date: 20190523
  Receipt Date: 20190523
  Transmission Date: 20190711
  Serious: Yes (Death, Hospitalization)
  Sender: FDA-Public Use
  Company Number: CA-TEVA-2019-CA-1051033

PATIENT
  Age: 10 Year
  Sex: Female
  Weight: 20 kg

DRUGS (7)
  1. BESPONSA [Suspect]
     Active Substance: INOTUZUMAB OZOGAMICIN
     Indication: ACUTE LYMPHOCYTIC LEUKAEMIA
     Dosage: DOSAGE FORM : POWDER FOR SOLUTION INTRAVENOUS
     Route: 042
  2. TRAMETINIB [Concomitant]
     Active Substance: TRAMETINIB
     Indication: ACUTE LYMPHOCYTIC LEUKAEMIA
     Dosage: .5 MILLIGRAM DAILY;
     Route: 048
  3. VORICONAZOLE. [Suspect]
     Active Substance: VORICONAZOLE
     Indication: FUNGAL INFECTION
     Dosage: 400 MILLIGRAM DAILY;
     Route: 048
  4. ALLOPURINOL. [Concomitant]
     Active Substance: ALLOPURINOL
     Indication: TUMOUR LYSIS SYNDROME
     Dosage: 300 MILLIGRAM DAILY;
     Route: 048
  5. CASPOFUNGIN [Concomitant]
     Active Substance: CASPOFUNGIN
     Indication: FUNGAL INFECTION
     Dosage: 45 MILLIGRAM DAILY;
     Route: 042
  6. HYDROMORPHONE [Concomitant]
     Active Substance: HYDROMORPHONE
     Indication: PAIN
     Route: 048
  7. AMPHOTERICIN B. [Concomitant]
     Active Substance: AMPHOTERICIN B
     Indication: FUNGAL INFECTION
     Dosage: 110 MILLIGRAM DAILY;
     Route: 042

REACTIONS (13)
  - Hepatic enzyme increased [Fatal]
  - Neoplasm progression [Fatal]
  - Bronchopulmonary aspergillosis [Fatal]
  - Cystitis [Fatal]
  - Pain [Fatal]
  - Cytomegalovirus viraemia [Fatal]
  - Neutropenia [Fatal]
  - Pyrexia [Fatal]
  - Bacterial infection [Fatal]
  - Hypothyroidism [Fatal]
  - Polyomavirus-associated nephropathy [Fatal]
  - Product use issue [Fatal]
  - Aspergillus infection [Fatal]
